FAERS Safety Report 6957838-6 (Version None)
Quarter: 2010Q3

REPORT INFORMATION
  Report Type: 
  Country: None (occurrence: None)
  Receive Date: 20100831
  Receipt Date: 20100816
  Transmission Date: 20110219
  Serious: Yes (Other)
  Sender: FDA-Public Use
  Company Number: AU-MYLANLABS-2010S1015062

PATIENT
  Age: 41 Year
  Sex: Female

DRUGS (1)
  1. DIAZEPAM [Suspect]
     Indication: STRESS
     Route: 048
     Dates: start: 20010101

REACTIONS (26)
  - ANAEMIA [None]
  - ARTHRALGIA [None]
  - BACK PAIN [None]
  - BEDRIDDEN [None]
  - BLINDNESS [None]
  - CHEST DISCOMFORT [None]
  - COLITIS ULCERATIVE [None]
  - DEAFNESS [None]
  - DRUG RASH WITH EOSINOPHILIA AND SYSTEMIC SYMPTOMS [None]
  - EYE PAIN [None]
  - FATIGUE [None]
  - HEAD DISCOMFORT [None]
  - HEADACHE [None]
  - IMMUNE SYSTEM DISORDER [None]
  - MEMORY IMPAIRMENT [None]
  - MIGRAINE [None]
  - MULTIPLE CHEMICAL SENSITIVITY [None]
  - MYALGIA [None]
  - NIGHTMARE [None]
  - PAIN IN EXTREMITY [None]
  - RASH [None]
  - SENSATION OF BLOOD FLOW [None]
  - SUICIDAL IDEATION [None]
  - TINNITUS [None]
  - TREMOR [None]
  - TRICHOTILLOMANIA [None]
